FAERS Safety Report 21690068 (Version 1)
Quarter: 2022Q4

REPORT INFORMATION
  Report Type: Report from Study
  Country: IT (occurrence: IT)
  Receive Date: 20221206
  Receipt Date: 20221206
  Transmission Date: 20230113
  Serious: Yes (Death, Hospitalization, Other)
  Sender: FDA-Public Use
  Company Number: IT-002147023-NVSC2020IT064075

PATIENT

DRUGS (4)
  1. RUXOLITINIB [Suspect]
     Active Substance: RUXOLITINIB
     Indication: Myelofibrosis
     Dosage: UNK(TOTAL DAILY DOSE: 30)
     Route: 065
     Dates: start: 20180608, end: 20180802
  2. RUXOLITINIB [Suspect]
     Active Substance: RUXOLITINIB
     Dosage: UNK(TOTAL DAILY DOSE: 15)
     Route: 065
     Dates: start: 20180814, end: 20180917
  3. RUXOLITINIB [Suspect]
     Active Substance: RUXOLITINIB
     Dosage: UNK(TOTAL DAILY DOSE: 30)
     Route: 065
     Dates: start: 20180918
  4. RUXOLITINIB [Suspect]
     Active Substance: RUXOLITINIB
     Dosage: 30 MG (TOTAL DAILY DOSE)
     Route: 048
     Dates: start: 20180608, end: 20220912

REACTIONS (8)
  - Anaemia [Unknown]
  - Folate deficiency [Unknown]
  - Pain [Unknown]
  - Meningioma [Not Recovered/Not Resolved]
  - Platelet count decreased [Unknown]
  - SARS-CoV-2 test positive [Recovered/Resolved]
  - Septic shock [Fatal]
  - White blood cell count decreased [Unknown]

NARRATIVE: CASE EVENT DATE: 20180725
